FAERS Safety Report 6626866-2 (Version None)
Quarter: 2010Q1

REPORT INFORMATION
  Report Type: 
  Country: None (occurrence: None)
  Receive Date: 20100311
  Receipt Date: 20100226
  Transmission Date: 20100710
  Serious: Yes (Hospitalization)
  Sender: FDA-Public Use
  Company Number: DE-JNJFOC-20100300902

PATIENT
  Age: 60 Year
  Sex: Male

DRUGS (6)
  1. DOXORUBICIN [Suspect]
     Indication: MULTIPLE MYELOMA
  2. DOXORUBICIN [Suspect]
  3. VELCADE [Suspect]
     Indication: MULTIPLE MYELOMA
  4. VELCADE [Suspect]
  5. DEXAMETHASONE [Suspect]
     Indication: MULTIPLE MYELOMA
  6. DEXAMETHASONE [Suspect]

REACTIONS (3)
  - ABDOMINAL PAIN [None]
  - HICCUPS [None]
  - PNEUMONIA [None]
